FAERS Safety Report 10224703 (Version 2)
Quarter: 2014Q2

REPORT INFORMATION
  Report Type: Spontaneous
  Country: IT (occurrence: IT)
  Receive Date: 20140609
  Receipt Date: 20140609
  Transmission Date: 20141212
  Serious: Yes (Life-Threatening)
  Sender: FDA-Public Use
  Company Number: IT-WATSON-2013B-03394

PATIENT
  Age: 82 Year
  Sex: Female

DRUGS (9)
  1. ATENOLOL (UNKNOWN) [Suspect]
     Indication: HYPERTENSION
     Route: 048
     Dates: start: 20110101, end: 20130530
  2. RYTMONORM [Suspect]
     Indication: ATRIAL FIBRILLATION
     Dosage: STRENGTH 150 MG / 1 POSOLOGIC
     Route: 048
     Dates: start: 20110101, end: 20130530
  3. ARIXTRA [Concomitant]
     Indication: PRODUCT USED FOR UNKNOWN INDICATION
     Route: 065
  4. ANTRA                              /00661201/ [Concomitant]
     Indication: PRODUCT USED FOR UNKNOWN INDICATION
     Route: 065
  5. TACHIDOL [Concomitant]
     Indication: PRODUCT USED FOR UNKNOWN INDICATION
     Route: 065
  6. RILUTEK [Concomitant]
     Indication: AMYOTROPHIC LATERAL SCLEROSIS
     Route: 065
  7. ENALAPRIL [Concomitant]
     Indication: HYPERTENSION
     Route: 065
  8. CITALOPRAM [Concomitant]
     Indication: PRODUCT USED FOR UNKNOWN INDICATION
     Route: 065
  9. ALPRAZOLAM [Concomitant]
     Indication: PRODUCT USED FOR UNKNOWN INDICATION
     Route: 065

REACTIONS (2)
  - Bradycardia [Recovering/Resolving]
  - Malaise [Recovering/Resolving]
